FAERS Safety Report 7126049-6 (Version None)
Quarter: 2010Q4

REPORT INFORMATION
  Report Type: 
  Country: None (occurrence: None)
  Receive Date: 20101129
  Receipt Date: 20101117
  Transmission Date: 20110411
  Serious: Yes (Hospitalization)
  Sender: FDA-Public Use
  Company Number: AT-ROCHE-742764

PATIENT
  Sex: Female
  Weight: 73 kg

DRUGS (3)
  1. AVASTIN [Suspect]
     Route: 042
     Dates: start: 20100827
  2. CARBOPLATIN [Suspect]
     Dosage: DOSE: AUC 6
     Route: 042
     Dates: start: 20100827
  3. TAXOL [Suspect]
     Route: 042
     Dates: start: 20100827

REACTIONS (1)
  - POLYNEUROPATHY [None]
